FAERS Safety Report 21218643 (Version 2)
Quarter: 2022Q3

REPORT INFORMATION
  Report Type: Report from Study
  Country: US (occurrence: US)
  Receive Date: 20220816
  Receipt Date: 20220822
  Transmission Date: 20221026
  Serious: No
  Sender: FDA-Public Use
  Company Number: US-SANOFI-01228312

PATIENT
  Age: 55 Year
  Sex: Female

DRUGS (3)
  1. DUPIXENT [Suspect]
     Active Substance: DUPILUMAB
     Indication: Dermatitis atopic
     Dosage: 600 MG, 1X
     Route: 058
     Dates: start: 20220501, end: 20220501
  2. DUPIXENT [Suspect]
     Active Substance: DUPILUMAB
     Dosage: 300 MG, QOW
     Route: 058
  3. RINVOQ [Suspect]
     Active Substance: UPADACITINIB
     Dosage: UNK

REACTIONS (5)
  - Dizziness [Unknown]
  - Headache [Unknown]
  - Drug hypersensitivity [Unknown]
  - Injection site pain [Unknown]
  - Product preparation error [Unknown]
